FAERS Safety Report 17710552 (Version 1)
Quarter: 2020Q2

REPORT INFORMATION
  Report Type: Spontaneous
  Country: US (occurrence: US)
  Receive Date: 20200427
  Receipt Date: 20200427
  Transmission Date: 20200714
  Serious: No
  Sender: FDA-Public Use
  Company Number: US-MYLANLABS-2020M1039236

PATIENT
  Sex: Male

DRUGS (1)
  1. BUTORPHANOL TARTRATE NASAL SOLUTION, USP [Suspect]
     Active Substance: BUTORPHANOL TARTRATE
     Indication: MIGRAINE
     Dosage: 1-2 TIMES / DAY
     Route: 045

REACTIONS (6)
  - Sleep disorder [Recovering/Resolving]
  - Migraine [Not Recovered/Not Resolved]
  - Blood pressure increased [Recovering/Resolving]
  - Incorrect dose administered by product [Unknown]
  - Incorrect dose administered [Not Recovered/Not Resolved]
  - Back pain [Recovering/Resolving]
